FAERS Safety Report 7355364-6 (Version None)
Quarter: 2011Q1

REPORT INFORMATION
  Report Type: 
  Country: None (occurrence: None)
  Receive Date: 20110316
  Receipt Date: 20110307
  Transmission Date: 20110831
  Serious: Yes (Hospitalization)
  Sender: FDA-Public Use
  Company Number: DE-ROCHE-763748

PATIENT
  Age: 44 Year
  Sex: Female

DRUGS (3)
  1. LAMOTRIGINE [Suspect]
     Route: 048
  2. DIAZEPAM [Suspect]
     Route: 048
  3. VENLAFAXINE [Suspect]
     Route: 048

REACTIONS (6)
  - SEROTONIN SYNDROME [None]
  - MUSCLE RIGIDITY [None]
  - CONVULSION [None]
  - COMA [None]
  - HYPERREFLEXIA [None]
  - OVERDOSE [None]
